FAERS Safety Report 4526395-6 (Version None)
Quarter: 2004Q4

REPORT INFORMATION
  Report Type: 
  Country: None (occurrence: None)
  Receive Date: 20041213
  Receipt Date: 20041126
  Transmission Date: 20050328
  Serious: Yes (Hospitalization)
  Sender: FDA-Public Use
  Company Number: 2004-DE-04683GL

PATIENT
  Sex: Female

DRUGS (3)
  1. TELMISARTAN (TELMISARTAN) [Suspect]
     Dates: start: 20040701
  2. DILTIAZEM HYDROCHLORIDE [Concomitant]
  3. ASPIRIN (ACERTYLSALICYLIC ACID) [Concomitant]

REACTIONS (1)
  - CHOREA [None]
